FAERS Safety Report 20034950 (Version 1)
Quarter: 2021Q4

REPORT INFORMATION
  Report Type: Spontaneous
  Country: US (occurrence: US)
  Receive Date: 20211104
  Receipt Date: 20211104
  Transmission Date: 20220303
  Serious: Yes (Other)
  Sender: FDA-Public Use
  Company Number: US-SA-SAC20211102000153

PATIENT
  Sex: Male

DRUGS (10)
  1. DUPIXENT [Suspect]
     Active Substance: DUPILUMAB
     Indication: Dermatitis atopic
     Dosage: 300 MG, QOW
     Route: 058
     Dates: start: 202108
  2. ADVIL [Concomitant]
     Active Substance: IBUPROFEN
  3. RIZATRIPTAN [Concomitant]
     Active Substance: RIZATRIPTAN
  4. TYLENOL [Concomitant]
     Active Substance: ACETAMINOPHEN
  5. SUMATRIPTAN SUCCINATE [Concomitant]
     Active Substance: SUMATRIPTAN SUCCINATE
  6. PREDNISONE [Concomitant]
     Active Substance: PREDNISONE
  7. LORAZEPAM [Concomitant]
     Active Substance: LORAZEPAM
  8. EPINEPHRINE [Concomitant]
     Active Substance: EPINEPHRINE
  9. TRIAMCINOLONE ACETONIDE [Concomitant]
     Active Substance: TRIAMCINOLONE ACETONIDE
  10. COVID-19 VACCINE [Concomitant]

REACTIONS (1)
  - Atypical pneumonia [Unknown]
